FAERS Safety Report 8844203 (Version 1)
Quarter: 2012Q4

REPORT INFORMATION
  Report Type: 
  Country: GB (occurrence: GB)
  Receive Date: 20121016
  Receipt Date: 20121016
  Transmission Date: 20130627
  Serious: Yes (Hospitalization)
  Sender: FDA-Public Use
  Company Number: GB-PERRIGO-12GB008647

PATIENT
  Age: 79 Year
  Sex: Male
  Weight: 95.3 kg

DRUGS (4)
  1. IBUPROFEN 16028/0013 200 MG [Suspect]
     Indication: ARTHRALGIA
     Dosage: 400 mg, tid
     Route: 048
     Dates: start: 20120507, end: 20120514
  2. FLUTICASONE [Concomitant]
     Indication: PRODUCT USED FOR UNKNOWN INDICATION
     Dosage: 50 mg, qd
     Route: 045
  3. QUININE SULFATE [Concomitant]
     Indication: PRODUCT USED FOR UNKNOWN INDICATION
     Dosage: 300 mg, qd
     Route: 065
  4. TAMSULOSIN HCL [Concomitant]
     Indication: PROSTATIC DISORDER
     Dosage: 400 mg, qd
     Route: 065

REACTIONS (2)
  - Chest pain [Recovered/Resolved]
  - Vomiting [Recovered/Resolved]
